FAERS Safety Report 5896236-3 (Version None)
Quarter: 2008Q3

REPORT INFORMATION
  Report Type: 
  Country: None (occurrence: None)
  Receive Date: 20080924
  Receipt Date: 20080916
  Transmission Date: 20090109
  Serious: Yes (Death)
  Sender: FDA-Public Use
  Company Number: JP-PFIZER INC-2008055549

PATIENT
  Age: 82 Year
  Sex: Female

DRUGS (5)
  1. CELECOX [Suspect]
     Indication: RHEUMATOID ARTHRITIS
     Dosage: DAILY DOSE:200MG
     Route: 048
     Dates: start: 20071212, end: 20080501
  2. DICLOFENAC SODIUM [Concomitant]
     Dosage: DAILY DOSE:50MG
     Route: 054
     Dates: start: 20071212, end: 20080510
  3. DRUG, UNSPECIFIED [Concomitant]
     Indication: CARDIAC FAILURE
  4. DRUG, UNSPECIFIED [Concomitant]
     Indication: RHEUMATOID ARTHRITIS
  5. DRUG, UNSPECIFIED [Concomitant]

REACTIONS (1)
  - PNEUMONIA [None]
